FAERS Safety Report 9237338 (Version 2)
Quarter: 2013Q2

REPORT INFORMATION
  Report Type: Spontaneous
  Country: JP (occurrence: JP)
  Receive Date: 20130417
  Receipt Date: 20130425
  Transmission Date: 20140414
  Serious: Yes (Death)
  Sender: FDA-Public Use
  Company Number: JP-B.I. PHARMACEUTICALS,INC./RIDGEFIELD-2013-BI-10408GD

PATIENT
  Age: 68 Year
  Sex: Male

DRUGS (4)
  1. PERSANTIN [Suspect]
     Indication: MALIGNANT ATROPHIC PAPULOSIS
     Dosage: 75 MG
     Route: 065
  2. ASPIRIN [Concomitant]
     Indication: MALIGNANT ATROPHIC PAPULOSIS
     Dosage: 100 MG
     Route: 065
  3. MINOCYCLINE HYDROCHLORIDE [Concomitant]
     Indication: MALIGNANT ATROPHIC PAPULOSIS
     Dosage: 100 MG
     Route: 065
  4. FREEZE-DRIED SULFONATED HUMAN NORMAL IMMUNOGLOBULIN [Concomitant]
     Indication: MALIGNANT ATROPHIC PAPULOSIS
     Route: 065

REACTIONS (3)
  - Septic shock [Fatal]
  - Gastrointestinal perforation [Fatal]
  - Haemorrhage [Fatal]
